FAERS Safety Report 20465739 (Version 2)
Quarter: 2022Q1

REPORT INFORMATION
  Report Type: Spontaneous
  Country: GB (occurrence: GB)
  Receive Date: 20220212
  Receipt Date: 20220223
  Transmission Date: 20220423
  Serious: Yes (Other)
  Sender: FDA-Public Use
  Company Number: None

PATIENT
  Age: 70 Year
  Sex: Female

DRUGS (1)
  1. TRIMETHOPRIM [Suspect]
     Active Substance: TRIMETHOPRIM
     Dosage: 400 MILLIGRAM DAILY;

REACTIONS (10)
  - Middle insomnia [Unknown]
  - Anxiety [Unknown]
  - Muscle spasms [Unknown]
  - Mouth ulceration [Unknown]
  - Anger [Unknown]
  - Aggression [Unknown]
  - Thinking abnormal [Unknown]
  - Vitreous floaters [Unknown]
  - Impaired reasoning [Unknown]
  - Violence-related symptom [Unknown]
